FAERS Safety Report 20907206 (Version 1)
Quarter: 2022Q2

REPORT INFORMATION
  Report Type: Spontaneous
  Country: IT (occurrence: IT)
  Receive Date: 20220602
  Receipt Date: 20220602
  Transmission Date: 20220720
  Serious: Yes (Life-Threatening)
  Sender: FDA-Public Use
  Company Number: IT-FreseniusKabi-FK202207580

PATIENT

DRUGS (2)
  1. CLONIDINE HYDROCHLORIDE [Suspect]
     Active Substance: CLONIDINE HYDROCHLORIDE
     Indication: Syncope
  2. LIDOCAINE [Suspect]
     Active Substance: LIDOCAINE
     Indication: Syncope

REACTIONS (1)
  - Cardiac arrest [Unknown]
